FAERS Safety Report 6500259-0 (Version None)
Quarter: 2009Q4

REPORT INFORMATION
  Report Type: 
  Country: None (occurrence: None)
  Receive Date: 20091216
  Receipt Date: 20091207
  Transmission Date: 20100525
  Serious: Yes (Hospitalization)
  Sender: FDA-Public Use
  Company Number: ES-ROCHE-642284

PATIENT
  Sex: Male
  Weight: 63 kg

DRUGS (8)
  1. MYCOPHENOLATE MOFETIL [Suspect]
     Route: 048
     Dates: start: 20080617
  2. MYCOPHENOLATE MOFETIL [Interacting]
     Dosage: DOSE REDUCED
     Route: 048
     Dates: start: 20080803
  3. CP-690550 [Interacting]
     Dosage: LAST DOSE ON 13 AUGUST 2008
     Route: 048
     Dates: start: 20080617, end: 20080813
  4. ARANESP [Concomitant]
     Route: 058
     Dates: start: 20080701
  5. PANTOPRAZOLE [Concomitant]
     Route: 048
     Dates: start: 20080701
  6. PREDNISONE [Concomitant]
     Indication: PROPHYLAXIS AGAINST TRANSPLANT REJECTION
     Route: 048
     Dates: start: 20080729
  7. AMLODIPINE [Concomitant]
     Route: 048
     Dates: start: 20080715
  8. SEPTRIN [Concomitant]
     Dosage: DRUG REPORTED AS SEPTRIM
     Route: 048
     Dates: start: 20080623

REACTIONS (4)
  - ANAEMIA [None]
  - DRUG INTERACTION [None]
  - NEPHROPATHY TOXIC [None]
  - PYREXIA [None]
